FAERS Safety Report 6315449-X (Version None)
Quarter: 2009Q3

REPORT INFORMATION
  Report Type: 
  Country: None (occurrence: None)
  Receive Date: 20090819
  Receipt Date: 20090810
  Transmission Date: 20100115
  Serious: Yes (Hospitalization)
  Sender: FDA-Public Use
  Company Number: SE-PFIZER INC-2009252271

PATIENT
  Age: 23 Year

DRUGS (12)
  1. XANOR [Suspect]
     Route: 048
     Dates: start: 20090616, end: 20090616
  2. PROPAVAN [Suspect]
     Dosage: 375 MG, UNK
     Route: 048
     Dates: start: 20090616, end: 20090616
  3. ZYPREXA [Concomitant]
     Dosage: UNK
  4. RISPERDAL [Concomitant]
     Dosage: UNK
  5. PRIMPERAN [Concomitant]
     Dosage: UNK
  6. PAROXETINE HCL [Concomitant]
     Dosage: UNK
  7. ANTABUSE [Concomitant]
     Dosage: UNK
  8. THERALEN [Concomitant]
     Dosage: UNK
  9. SOBRIL [Concomitant]
     Dosage: UNK
  10. NITRAZEPAM [Concomitant]
     Dosage: UNK
  11. TEMESTA [Concomitant]
     Dosage: UNK
  12. IMOVANE [Concomitant]
     Dosage: UNK

REACTIONS (1)
  - DRUG TOXICITY [None]
